FAERS Safety Report 5700393-9 (Version None)
Quarter: 2008Q2

REPORT INFORMATION
  Report Type: 
  Country: None (occurrence: None)
  Receive Date: 20080408
  Receipt Date: 20080408
  Transmission Date: 20081010
  Serious: Yes (Hospitalization)
  Sender: FDA-Public Use
  Company Number: None

PATIENT
  Age: 87 Year
  Sex: Male
  Weight: 79.38 kg

DRUGS (2)
  1. LISINOPRIL [Suspect]
     Indication: HYPERTENSION
     Dosage: 10MG EVERY DAY PO
     Route: 048
     Dates: start: 20011108, end: 20080402
  2. AMLODIPINE [Suspect]
     Dosage: 2.5MG EVERY DAY PO
     Route: 048
     Dates: start: 20070608, end: 20080402

REACTIONS (7)
  - CHEST INJURY [None]
  - FALL [None]
  - HEART RATE INCREASED [None]
  - LOSS OF CONSCIOUSNESS [None]
  - PRESYNCOPE [None]
  - SYNCOPE [None]
  - VERTIGO [None]
